FAERS Safety Report 22020887 (Version 1)
Quarter: 2023Q1

REPORT INFORMATION
  Report Type: Spontaneous
  Country: US (occurrence: None)
  Receive Date: 20230222
  Receipt Date: 20230222
  Transmission Date: 20230417
  Serious: Yes (Other)
  Sender: FDA-Public Use
  Company Number: US-MLMSERVICE-20230203-4082282-1

PATIENT
  Age: 44 Year
  Sex: Female

DRUGS (1)
  1. MYCOPHENOLATE MOFETIL [Suspect]
     Active Substance: MYCOPHENOLATE MOFETIL
     Indication: Interstitial lung disease
     Dosage: UNKNOWN
     Route: 065

REACTIONS (2)
  - Malacoplakia [Recovering/Resolving]
  - Gastrointestinal bacterial infection [Recovering/Resolving]
